FAERS Safety Report 13612911 (Version 1)
Quarter: 2017Q2

REPORT INFORMATION
  Report Type: Spontaneous
  Country: US (occurrence: US)
  Receive Date: 20170605
  Receipt Date: 20170605
  Transmission Date: 20170830
  Serious: No
  Sender: FDA-Public Use
  Company Number: US-SUNOVION-2017SUN002262

PATIENT
  Sex: Male

DRUGS (3)
  1. SYMBICORT [Concomitant]
     Active Substance: BUDESONIDE\FORMOTEROL FUMARATE DIHYDRATE
  2. SODIUM CHLORIDE. [Concomitant]
     Active Substance: SODIUM CHLORIDE
  3. BROVANA [Suspect]
     Active Substance: ARFORMOTEROL TARTRATE
     Dosage: UNK
     Route: 055

REACTIONS (4)
  - Bone pain [Unknown]
  - Pain in extremity [Unknown]
  - Cardiac disorder [Unknown]
  - Arthralgia [Unknown]
